FAERS Safety Report 6450376-9 (Version None)
Quarter: 2009Q4

REPORT INFORMATION
  Report Type: 
  Country: None (occurrence: None)
  Receive Date: 20091123
  Receipt Date: 20091112
  Transmission Date: 20100525
  Serious: Yes (Other)
  Sender: FDA-Public Use
  Company Number: US-AMGEN-QUU374388

PATIENT
  Sex: Female

DRUGS (3)
  1. ENBREL [Suspect]
     Indication: RHEUMATOID ARTHRITIS
     Route: 058
  2. ENBREL [Suspect]
     Indication: PSORIATIC ARTHROPATHY
  3. ENBREL [Suspect]
     Indication: PSORIASIS

REACTIONS (10)
  - COUGH [None]
  - EXCORIATION [None]
  - FALL [None]
  - HEADACHE [None]
  - OROPHARYNGEAL PAIN [None]
  - PAIN [None]
  - PSORIASIS [None]
  - PYREXIA [None]
  - SKIN ULCER [None]
  - SWELLING FACE [None]
